FAERS Safety Report 11092582 (Version 1)
Quarter: 2015Q2

REPORT INFORMATION
  Report Type: Spontaneous
  Country: US (occurrence: None)
  Receive Date: 20150505
  Receipt Date: 20150505
  Transmission Date: 20150821
  Serious: Yes (Hospitalization, Other)
  Sender: FDA-Public Use
  Company Number: None

PATIENT
  Age: 16 Year
  Sex: Male
  Weight: 68.04 kg

DRUGS (1)
  1. TAMIFLU [Suspect]
     Active Substance: OSELTAMIVIR PHOSPHATE
     Indication: INFLUENZA A VIRUS TEST POSITIVE
     Route: 048
     Dates: start: 20150310, end: 20150315

REACTIONS (12)
  - Abnormal behaviour [None]
  - Productive cough [None]
  - Abdominal pain upper [None]
  - Hallucination [None]
  - Delirium [None]
  - Constipation [None]
  - Sputum discoloured [None]
  - Agitation [None]
  - Insomnia [None]
  - Thinking abnormal [None]
  - Hypertension [None]
  - Liver function test abnormal [None]

NARRATIVE: CASE EVENT DATE: 20150312
